FAERS Safety Report 4286496-7 (Version None)
Quarter: 2004Q1

REPORT INFORMATION
  Report Type: 
  Country: None (occurrence: None)
  Receive Date: 20040205
  Receipt Date: 20040205
  Transmission Date: 20041129
  Serious: Yes (Other)
  Sender: FDA-Public Use
  Company Number: None

PATIENT
  Age: 90 Year
  Sex: Female
  Weight: 65.7716 kg

DRUGS (4)
  1. EFFEXOR XR [Suspect]
     Indication: ARTHRITIS
     Dosage: 37.5 MG BID PO
     Route: 048
     Dates: start: 20000101
  2. EFFEXOR XR [Suspect]
     Indication: CORONARY ARTERY SURGERY
     Dosage: 37.5 MG BID PO
     Route: 048
     Dates: start: 20000101
  3. EFFEXOR XR [Suspect]
     Indication: DEPRESSION
     Dosage: 37.5 MG BID PO
     Route: 048
     Dates: start: 20000101
  4. ALEVE [Suspect]
     Dosage: 220 MG PO BID
     Route: 048
     Dates: start: 20020708

REACTIONS (2)
  - AGGRESSION [None]
  - DYSPHONIA [None]
